FAERS Safety Report 6314752-7 (Version None)
Quarter: 2009Q3

REPORT INFORMATION
  Report Type: 
  Country: None (occurrence: None)
  Receive Date: 20090817
  Receipt Date: 20090813
  Transmission Date: 20100115
  Serious: Yes (Life-Threatening)
  Sender: FDA-Public Use
  Company Number: 09GB003109

PATIENT
  Age: 27 Year
  Sex: Male
  Weight: 50 kg

DRUGS (1)
  1. IBUPROFEN             16028/0013 200 MG (IBUPROFEN) [Suspect]
     Indication: PROCEDURAL PAIN
     Dosage: 200-400 MG EVERY 2-4 HOURS00, ORAL
     Route: 048
     Dates: start: 20090701, end: 20090721

REACTIONS (3)
  - GASTRITIS [None]
  - INAPPROPRIATE SCHEDULE OF DRUG ADMINISTRATION [None]
  - INTENTIONAL DRUG MISUSE [None]
